FAERS Safety Report 4726264-2 (Version None)
Quarter: 2005Q3

REPORT INFORMATION
  Report Type: 
  Country: None (occurrence: None)
  Receive Date: 20050725
  Receipt Date: 20050718
  Transmission Date: 20060218
  Serious: Yes (Death, Life-Threatening, Hospitalization, Other)
  Sender: FDA-Public Use
  Company Number: 200511010GDS

PATIENT
  Age: 68 Year
  Sex: Male

DRUGS (13)
  1. AVELOX [Suspect]
     Indication: BRONCHITIS CHRONIC
     Dosage: 400 MG, QD,  ORAL
     Route: 048
     Dates: start: 20050124, end: 20050211
  2. AVELOX [Suspect]
     Indication: BRONCHITIS CHRONIC
     Dosage: 400 MG, QD,  ORAL
     Route: 048
     Dates: start: 20050307, end: 20050314
  3. AUGMENTIN '125' [Suspect]
     Indication: BRONCHITIS CHRONIC
     Dosage: ORAL
     Route: 048
     Dates: start: 20050101
  4. LINCOCIN [Suspect]
     Indication: BRONCHITIS CHRONIC
     Dates: start: 20050202, end: 20050101
  5. OMEPRAZOLE [Suspect]
     Indication: DYSPEPSIA
     Dates: start: 20050202, end: 20050101
  6. GLUCOPHAGE [Suspect]
     Indication: DIABETES MELLITUS
     Dosage: ORAL
     Route: 048
     Dates: start: 20050310, end: 20050301
  7. MEDROL [Concomitant]
  8. SPIRIVA [Concomitant]
  9. SYMBICORT TURBUHALER [Concomitant]
  10. DUOVENT [Concomitant]
  11. ISILUNG [Concomitant]
  12. SOTALOL HCL [Concomitant]
  13. CARDIOASPIRINE [Concomitant]

REACTIONS (16)
  - CARDIOGENIC SHOCK [None]
  - CYTOMEGALOVIRUS HEPATITIS [None]
  - ENCEPHALOPATHY [None]
  - EOSINOPHILIA [None]
  - EPSTEIN-BARR VIRUS ANTIBODY POSITIVE [None]
  - GENERAL PHYSICAL HEALTH DETERIORATION [None]
  - HAEMODIALYSIS [None]
  - HAEMOLYTIC ANAEMIA [None]
  - HEPATITIS FULMINANT [None]
  - HEPATITIS TOXIC [None]
  - PERICARDITIS [None]
  - RENAL FAILURE [None]
  - RENAL TUBULAR NECROSIS [None]
  - SEPSIS [None]
  - THROMBOCYTOPENIA [None]
  - VIRAL INFECTION [None]
